FAERS Safety Report 6184176-4 (Version None)
Quarter: 2009Q2

REPORT INFORMATION
  Report Type: 
  Country: None (occurrence: None)
  Receive Date: 20090506
  Receipt Date: 20090420
  Transmission Date: 20091009
  Serious: Yes (Hospitalization)
  Sender: FDA-Public Use
  Company Number: 8044983

PATIENT
  Age: 43 Year
  Sex: Female
  Weight: 83.6 kg

DRUGS (3)
  1. LORTAB [Suspect]
     Indication: HEADACHE
     Dates: start: 20071101, end: 20071101
  2. CHANTIX [Suspect]
     Indication: SMOKING CESSATION THERAPY
     Dosage: 1 MG 10/D PO
     Route: 048
     Dates: start: 20071110
  3. DARVOCET [Suspect]
     Indication: HEADACHE
     Dates: start: 20071101

REACTIONS (6)
  - CHEST PAIN [None]
  - HEADACHE [None]
  - HEPATIC ENZYME INCREASED [None]
  - PYREXIA [None]
  - RASH MACULO-PAPULAR [None]
  - VIRAL INFECTION [None]
